FAERS Safety Report 9493897 (Version 3)
Quarter: 2013Q4

REPORT INFORMATION
  Report Type: Report from Study
  Country: BR (occurrence: BR)
  Receive Date: 20130903
  Receipt Date: 20131119
  Transmission Date: 20140711
  Serious: Yes (Death)
  Sender: FDA-Public Use
  Company Number: BR-ROCHE-1265822

PATIENT
  Age: 55 Year
  Sex: Female
  Weight: 74.6 kg

DRUGS (6)
  1. RIBAVIRIN [Suspect]
     Indication: CHRONIC HEPATITIS C
     Route: 048
     Dates: start: 20121204, end: 20130724
  2. PEG-INTERFERON ALFA 2A [Suspect]
     Indication: CHRONIC HEPATITIS C
     Route: 058
     Dates: start: 20121204, end: 20130724
  3. METFORMIN [Concomitant]
     Indication: DIABETES MELLITUS
     Dosage: 12/124
     Route: 048
  4. LOSARTAN [Concomitant]
     Indication: HYPERTENSION
     Route: 048
  5. ALENIA (BRAZIL) [Concomitant]
     Indication: ASTHMA
     Dosage: 12/124
     Route: 050
  6. AEROLIN [Concomitant]
     Indication: ASTHMA
     Dosage: 12/124
     Route: 050

REACTIONS (3)
  - Asthma [Fatal]
  - Septic shock [Fatal]
  - Diabetes mellitus [Fatal]
